FAERS Safety Report 18631244 (Version 3)
Quarter: 2021Q1

REPORT INFORMATION
  Report Type: Report from Study
  Country: US (occurrence: US)
  Receive Date: 20201218
  Receipt Date: 20210104
  Transmission Date: 20210419
  Serious: Yes (Hospitalization)
  Sender: FDA-Public Use
  Company Number: US-JNJFOC-20201230963

PATIENT
  Age: 8 Year
  Sex: Female
  Weight: 34.7 kg

DRUGS (4)
  1. INFLIXIMAB, RECOMBINANT [Suspect]
     Active Substance: INFLIXIMAB
     Indication: INFLAMMATORY BOWEL DISEASE
     Route: 042
     Dates: start: 20140219, end: 20141230
  2. LEUKINE [Concomitant]
     Active Substance: SARGRAMOSTIM
     Route: 065
     Dates: start: 20130604, end: 20130731
  3. HUMIRA [Suspect]
     Active Substance: ADALIMUMAB
     Indication: INFLAMMATORY BOWEL DISEASE
     Route: 065
     Dates: start: 20150127
  4. LEUKINE [Concomitant]
     Active Substance: SARGRAMOSTIM
     Route: 065
     Dates: start: 20131211, end: 20140113

REACTIONS (1)
  - Crohn^s disease [Recovered/Resolved]

NARRATIVE: CASE EVENT DATE: 202011
